FAERS Safety Report 5316377-9 (Version None)
Quarter: 2007Q2

REPORT INFORMATION
  Report Type: 
  Country: None (occurrence: None)
  Receive Date: 20070430
  Receipt Date: 20070417
  Transmission Date: 20071010
  Serious: Yes (Hospitalization)
  Sender: FDA-Public Use
  Company Number: 2007-00455

PATIENT
  Age: 62 Year
  Sex: Male
  Weight: 81.4 kg

DRUGS (19)
  1. VELCADE [Suspect]
     Indication: MULTIPLE MYELOMA
     Dosage: 2.35 MG
     Dates: start: 20061218, end: 20061226
  2. VELCADE [Suspect]
     Indication: MULTIPLE MYELOMA
     Dosage: 2.35 MG
     Dates: start: 20070213, end: 20070216
  3. THALIDOMIDE [Suspect]
     Indication: MULTIPLE MYELOMA
     Dates: start: 20061201
  4. DEXAMETHASONE TAB [Suspect]
     Indication: MULTIPLE MYELOMA
     Dates: start: 20061201
  5. CISPLATIN [Suspect]
     Indication: MULTIPLE MYELOMA
     Dates: start: 20061201
  6. DOXORUBICIN HCL [Suspect]
     Indication: MULTIPLE MYELOMA
     Dates: start: 20061201
  7. CYCLOPHOSPHAMIDE [Suspect]
     Indication: MULTIPLE MYELOMA
     Dates: start: 20061201
  8. ETOPOSIDE [Suspect]
     Indication: MULTIPLE MYELOMA
     Dates: start: 20061201
  9. VALTREX [Concomitant]
  10. ACIPHEX 9RABEPRAZOLE SODIUM) [Concomitant]
  11. MULTIVITAMINS (ERGOCALCIFEROL, PANTHENOL, NICOTINAMIDE, RIBOFLAVIN, TH [Concomitant]
  12. STOOL SOFTENER 9DOCUSATE SODIUM) [Concomitant]
  13. LORTAB [Concomitant]
  14. FAMVIR [Concomitant]
  15. PREVACID [Concomitant]
  16. CALCIUM WITH VITAMIN D (ERGOCALCIFEROL, CALCIUM SODIUM LACTATE, CALCIU [Concomitant]
  17. PEPCID AC [Concomitant]
  18. METRONIDAZOLE [Concomitant]
  19. PREDNISONE TAB [Concomitant]

REACTIONS (23)
  - ATELECTASIS [None]
  - BRONCHOPULMONARY ASPERGILLOSIS [None]
  - CHOLELITHIASIS [None]
  - CLOSTRIDIUM DIFFICILE COLITIS [None]
  - CONDITION AGGRAVATED [None]
  - DECREASED APPETITE [None]
  - EXFOLIATIVE RASH [None]
  - EYE DISCHARGE [None]
  - FEBRILE NEUTROPENIA [None]
  - HERPES SIMPLEX [None]
  - ICHTHYOSIS [None]
  - LEUKAEMIA PLASMACYTIC [None]
  - LUNG NEOPLASM [None]
  - LYMPHADENOPATHY MEDIASTINAL [None]
  - MOUTH ULCERATION [None]
  - MULTIPLE MYELOMA [None]
  - OTORRHOEA [None]
  - PARANEOPLASTIC SYNDROME [None]
  - PULMONARY GRANULOMA [None]
  - RASH GENERALISED [None]
  - SCAR [None]
  - SKIN NODULE [None]
  - THROMBOCYTOPENIA [None]
